FAERS Safety Report 5120829-4 (Version None)
Quarter: 2006Q4

REPORT INFORMATION
  Report Type: 
  Country: None (occurrence: None)
  Receive Date: 20061003
  Receipt Date: 20061003
  Transmission Date: 20070319
  Serious: Yes (Life-Threatening, Other)
  Sender: FDA-Public Use
  Company Number: None

PATIENT

DRUGS (1)
  1. SOLU-MEDROL [Suspect]

REACTIONS (1)
  - ANGIONEUROTIC OEDEMA [None]
